FAERS Safety Report 5951891-4 (Version None)
Quarter: 2008Q4

REPORT INFORMATION
  Report Type: 
  Country: None (occurrence: None)
  Receive Date: 20081022
  Receipt Date: 20080625
  Transmission Date: 20090506
  Serious: No
  Sender: FDA-Public Use
  Company Number: ALL1-2008-01876

PATIENT
  Age: 49 Year
  Sex: Male
  Weight: 81.6 kg

DRUGS (10)
  1. VYVANSE [Suspect]
     Indication: ATTENTION DEFICIT/HYPERACTIVITY DISORDER
     Dosage: 30 MG, 1X/DAY:QD, ORAL
     Route: 048
     Dates: start: 20080624, end: 20080625
  2. CITALOPRAM HYDROBROMIDE [Concomitant]
  3. ANDROGEL [Concomitant]
  4. LANTUS [Concomitant]
  5. METFORMIN HCL [Concomitant]
  6. NOVOLOG [Concomitant]
  7. SIMVASTIN (SIMAVSTATIN) [Concomitant]
  8. OMEPRAZOLE [Concomitant]
  9. JANUVIA (SITAGLIPTIN PHOSPHATE) [Concomitant]
  10. LISINOPRIL [Concomitant]

REACTIONS (1)
  - TACHYCARDIA [None]
